FAERS Safety Report 4365832-7 (Version None)
Quarter: 2004Q2

REPORT INFORMATION
  Report Type: 
  Country: None (occurrence: None)
  Receive Date: 20040524
  Receipt Date: 20040413
  Transmission Date: 20050107
  Serious: No
  Sender: FDA-Public Use
  Company Number: SU-2004-002286

PATIENT
  Age: 75 Year
  Sex: Female

DRUGS (7)
  1. BENICAR [Suspect]
     Indication: HYPERTENSION
     Dosage: 20 MG QD PO
     Route: 048
     Dates: start: 20040317
  2. ZOCOR [Concomitant]
  3. DYAZIDE [Concomitant]
  4. AZMACORT [Concomitant]
  5. BRETHINE [Concomitant]
  6. COMBIVENT [Concomitant]
  7. ALBUTEROL [Concomitant]

REACTIONS (1)
  - FATIGUE [None]
